FAERS Safety Report 8765750 (Version 1)
Quarter: 2012Q4

REPORT INFORMATION
  Report Type: 
  Country: US (occurrence: US)
  Receive Date: 20120904
  Receipt Date: 20120904
  Transmission Date: 20130627
  Serious: Yes (Other)
  Sender: FDA-Public Use
  Company Number: US-PFIZER INC-2012215638

PATIENT
  Age: 50 Year

DRUGS (1)
  1. ZOLOFT [Suspect]
     Dosage: 100 mg(1 tablet), 1x/day

REACTIONS (1)
  - Hypothyroidism [Unknown]
